FAERS Safety Report 16102641 (Version 1)
Quarter: 2019Q1

REPORT INFORMATION
  Report Type: Spontaneous
  Country: FR (occurrence: FR)
  Receive Date: 20190321
  Receipt Date: 20190321
  Transmission Date: 20190418
  Serious: Yes (Hospitalization)
  Sender: FDA-Public Use
  Company Number: FR-009507513-1903FRA008006

PATIENT
  Age: 65 Year
  Sex: Male
  Weight: 85 kg

DRUGS (2)
  1. EMEND [Suspect]
     Active Substance: APREPITANT
     Indication: COLORECTAL CANCER
     Dosage: 125 MILLIGRAM, ONCE
     Route: 048
     Dates: start: 20190205
  2. IRINOTECAN HYDROCHLORIDE. [Suspect]
     Active Substance: IRINOTECAN HYDROCHLORIDE
     Indication: COLORECTAL CANCER
     Dosage: 360 MILLIGRAM, ONCE
     Route: 042
     Dates: start: 20190205

REACTIONS (2)
  - Erythema [Recovered/Resolved]
  - Vomiting [Recovered/Resolved]

NARRATIVE: CASE EVENT DATE: 20190205
